FAERS Safety Report 21859742 (Version 1)
Quarter: 2023Q1

REPORT INFORMATION
  Report Type: Spontaneous
  Country: US (occurrence: US)
  Receive Date: 20230113
  Receipt Date: 20230113
  Transmission Date: 20230417
  Serious: No
  Sender: FDA-Public Use
  Company Number: US-PERRIGO-22US005848

PATIENT
  Sex: Female

DRUGS (1)
  1. IBUPROFEN AND DIPHENHYDRAMINE CITRATE [Suspect]
     Active Substance: DIPHENHYDRAMINE CITRATE\IBUPROFEN
     Indication: Hypersensitivity
     Dosage: UNK, QD
     Route: 048
     Dates: start: 2021

REACTIONS (3)
  - Ulcer [Not Recovered/Not Resolved]
  - Off label use [Unknown]
  - Incorrect product administration duration [Unknown]

NARRATIVE: CASE EVENT DATE: 20210101
